FAERS Safety Report 20574019 (Version 10)
Quarter: 2024Q1

REPORT INFORMATION
  Report Type: Other
  Country: CA (occurrence: None)
  Receive Date: 20220309
  Receipt Date: 20240116
  Transmission Date: 20240409
  Serious: Yes (Death, Life-Threatening, Hospitalization, Other)
  Sender: FDA-Public Use
  Company Number: CA-ROCHE-3045979

PATIENT
  Age: 49 Year
  Sex: Male
  Weight: 70.1 kg

DRUGS (42)
  1. ACTEMRA [Suspect]
     Active Substance: TOCILIZUMAB
     Indication: Rheumatoid arthritis
     Route: 042
     Dates: start: 20180925
  2. ACTEMRA [Suspect]
     Active Substance: TOCILIZUMAB
     Route: 042
     Dates: start: 20180925, end: 20181120
  3. ACTEMRA [Suspect]
     Active Substance: TOCILIZUMAB
     Route: 042
  4. ACTEMRA [Suspect]
     Active Substance: TOCILIZUMAB
     Route: 042
     Dates: start: 20210316
  5. ACTEMRA [Suspect]
     Active Substance: TOCILIZUMAB
     Route: 042
  6. ACTEMRA [Suspect]
     Active Substance: TOCILIZUMAB
     Indication: Rheumatoid arthritis
     Route: 058
     Dates: start: 20230414
  7. ACETAMINOPHEN [Concomitant]
     Active Substance: ACETAMINOPHEN
     Route: 048
  8. ACETAMINOPHEN\OXYCODONE HYDROCHLORIDE [Concomitant]
     Active Substance: ACETAMINOPHEN\OXYCODONE HYDROCHLORIDE
     Route: 048
  9. AMLODIPINE [Concomitant]
     Active Substance: AMLODIPINE BESYLATE
     Route: 048
  10. CALCIUM CARBONATE [Concomitant]
     Active Substance: CALCIUM CARBONATE
  11. CELEBREX [Concomitant]
     Active Substance: CELECOXIB
  12. DIAZEPAM [Concomitant]
     Active Substance: DIAZEPAM
     Dosage: BEDTIME
     Route: 048
  13. DILAUDID [Concomitant]
     Active Substance: HYDROMORPHONE HYDROCHLORIDE
  14. DIMENHYDRINATE [Concomitant]
     Active Substance: DIMENHYDRINATE
     Route: 048
  15. DIPHENHYDRAMINE [Concomitant]
     Active Substance: DIPHENHYDRAMINE
     Route: 048
  16. DIVALPROEX SODIUM [Concomitant]
     Active Substance: DIVALPROEX SODIUM
  17. DULCOLAX (BISACODYL) [Concomitant]
     Active Substance: BISACODYL
     Route: 054
  18. GABAPENTIN [Concomitant]
     Active Substance: GABAPENTIN
     Route: 048
  19. GLUCAGON [Concomitant]
     Active Substance: GLUCAGON\GLUCAGON HYDROCHLORIDE\WATER
     Route: 058
  20. GRAVOL [Concomitant]
     Active Substance: DIMENHYDRINATE
  21. INSULIN NOS [Concomitant]
     Active Substance: INSULIN NOS
  22. LACTULOSE [Concomitant]
     Active Substance: LACTULOSE
  23. LANTUS [Concomitant]
     Active Substance: INSULIN GLARGINE
  24. LEVOTHYROXINE SODIUM [Concomitant]
     Active Substance: LEVOTHYROXINE SODIUM
  25. LIPITOR [Concomitant]
     Active Substance: ATORVASTATIN CALCIUM
  26. MOXIFLOXACIN [Concomitant]
     Active Substance: MOXIFLOXACIN
  27. NOVORAPID [Concomitant]
     Active Substance: INSULIN ASPART
  28. PERCOCET [Concomitant]
     Active Substance: ACETAMINOPHEN\OXYCODONE HYDROCHLORIDE
     Dosage: 5-325 NG
  29. PREDNISONE [Concomitant]
     Active Substance: PREDNISONE
  30. QUINAPRIL [Concomitant]
     Active Substance: QUINAPRIL
     Route: 048
  31. RANITIDINE [Concomitant]
     Active Substance: RANITIDINE
  32. RIVAROXABAN [Concomitant]
     Active Substance: RIVAROXABAN
  33. ROSUVASTATIN [Concomitant]
     Active Substance: ROSUVASTATIN
  34. SENOKOT [Concomitant]
     Active Substance: SENNOSIDES
  35. SYNTHROID [Concomitant]
     Active Substance: LEVOTHYROXINE SODIUM
  36. TAMSULOSIN [Concomitant]
     Active Substance: TAMSULOSIN
  37. TEMAZEPAM [Concomitant]
     Active Substance: TEMAZEPAM
     Route: 048
  38. TESTOSTERONE [Concomitant]
     Active Substance: TESTOSTERONE
  39. VALTREX [Concomitant]
     Active Substance: VALACYCLOVIR HYDROCHLORIDE
  40. WELLBUTRIN [Concomitant]
     Active Substance: BUPROPION HYDROCHLORIDE
  41. XARELTO [Concomitant]
     Active Substance: RIVAROXABAN
  42. ZOPICLONE [Concomitant]
     Active Substance: ZOPICLONE

REACTIONS (33)
  - Death [Fatal]
  - Arthritis bacterial [Recovered/Resolved]
  - Ulcerative keratitis [Unknown]
  - Arthropathy [Unknown]
  - Eye disorder [Unknown]
  - Blindness [Unknown]
  - Carpal tunnel syndrome [Unknown]
  - Weight decreased [Unknown]
  - Arthritis bacterial [Recovered/Resolved]
  - Ulcerative keratitis [Not Recovered/Not Resolved]
  - White blood cell count increased [Unknown]
  - Haemoglobin decreased [Unknown]
  - Bronchial wall thickening [Unknown]
  - Effusion [Unknown]
  - Rib fracture [Recovering/Resolving]
  - Eye disorder [Unknown]
  - Pain [Recovering/Resolving]
  - Infection [Unknown]
  - Arthritis bacterial [Recovered/Resolved]
  - Atelectasis [Unknown]
  - Blood glucose fluctuation [Unknown]
  - Anxiety [Unknown]
  - Insomnia [Unknown]
  - Constipation [Unknown]
  - Diabetic foot [Recovered/Resolved]
  - Skin ulcer [Unknown]
  - Leukocytosis [Unknown]
  - Weight increased [Unknown]
  - Rheumatoid arthritis [Unknown]
  - Wound [Unknown]
  - Genital herpes [Recovered/Resolved]
  - Skin ulcer [Unknown]
  - Impaired healing [Unknown]

NARRATIVE: CASE EVENT DATE: 20181213
